FAERS Safety Report 11379361 (Version 1)
Quarter: 2015Q3

REPORT INFORMATION
  Report Type: Spontaneous
  Country: GB (occurrence: None)
  Receive Date: 20150812
  Receipt Date: 20150812
  Transmission Date: 20151125
  Serious: Yes (Hospitalization)
  Sender: FDA-Public Use
  Company Number: UCM201508-000541

PATIENT
  Age: 30 Year
  Sex: Male

DRUGS (1)
  1. CLONIDINE HCL (CLONIDINE HCL) (CLONIDINE HCL) [Suspect]
     Active Substance: CLONIDINE HYDROCHLORIDE

REACTIONS (8)
  - Tachycardia [None]
  - Acute pulmonary oedema [None]
  - Pyrexia [None]
  - Hypertension [None]
  - Hyperhidrosis [None]
  - Lacrimation increased [None]
  - Acute respiratory distress syndrome [None]
  - Withdrawal syndrome [None]
